FAERS Safety Report 24647883 (Version 1)
Quarter: 2024Q4

REPORT INFORMATION
  Report Type: Spontaneous
  Country: JP (occurrence: JP)
  Receive Date: 20241121
  Receipt Date: 20241121
  Transmission Date: 20250115
  Serious: Yes (Other)
  Sender: PFIZER
  Company Number: JP-PFIZER INC-PV202400149313

PATIENT
  Age: 82 Year
  Sex: Male

DRUGS (1)
  1. TAFAMIDIS [Suspect]
     Active Substance: TAFAMIDIS
     Indication: Cardiac amyloidosis
     Dosage: UNK
     Route: 048

REACTIONS (5)
  - Movement disorder [Unknown]
  - Left ventricular dysfunction [Unknown]
  - Atrial flutter [Unknown]
  - Bradyarrhythmia [Unknown]
  - Tachycardia [Unknown]
